FAERS Safety Report 9254649 (Version 1)
Quarter: 2013Q2

REPORT INFORMATION
  Report Type: Spontaneous
  Country: AU (occurrence: AU)
  Receive Date: 20130425
  Receipt Date: 20130425
  Transmission Date: 20140414
  Serious: Yes (Other)
  Sender: FDA-Public Use
  Company Number: AU-BAYER-2013-046477

PATIENT
  Age: 5 Year
  Sex: Female

DRUGS (2)
  1. NAPROGESIC [Suspect]
     Indication: INFLAMMATORY MYOFIBROBLASTIC TUMOUR
     Dosage: UNK
     Dates: end: 201205
  2. NAPROGESIC [Suspect]
     Indication: INFLAMMATORY MYOFIBROBLASTIC TUMOUR
     Dosage: 175 MG, BID
     Route: 048
     Dates: start: 201211

REACTIONS (2)
  - Liver function test abnormal [None]
  - Off label use [None]
